FAERS Safety Report 19020688 (Version 1)
Quarter: 2021Q1

REPORT INFORMATION
  Report Type: Spontaneous
  Country: US (occurrence: US)
  Receive Date: 20210317
  Receipt Date: 20210317
  Transmission Date: 20210420
  Serious: Yes (Other)
  Sender: FDA-Public Use
  Company Number: US-PFIZER INC-2021251844

PATIENT
  Age: 9 Decade
  Sex: Female

DRUGS (1)
  1. TIKOSYN [Suspect]
     Active Substance: DOFETILIDE
     Dosage: UNK

REACTIONS (4)
  - Cerebrovascular accident [Unknown]
  - Loss of consciousness [Unknown]
  - Syncope [Unknown]
  - Intentional self-injury [Unknown]
